FAERS Safety Report 15336368 (Version 1)
Quarter: 2018Q3

REPORT INFORMATION
  Report Type: Report from Study
  Country: US (occurrence: US)
  Receive Date: 20180830
  Receipt Date: 20180830
  Transmission Date: 20181010
  Serious: Yes (Other)
  Sender: FDA-Public Use
  Company Number: US-TEVA-2018-US-948745

PATIENT
  Age: 39 Year
  Sex: Female

DRUGS (1)
  1. CINQAIR [Suspect]
     Active Substance: RESLIZUMAB
     Route: 042
     Dates: start: 20180710

REACTIONS (3)
  - Throat tightness [Unknown]
  - Influenza like illness [Unknown]
  - Adverse event [Unknown]

NARRATIVE: CASE EVENT DATE: 201808
